FAERS Safety Report 12538530 (Version 1)
Quarter: 2016Q3

REPORT INFORMATION
  Report Type: Spontaneous
  Country: US (occurrence: US)
  Receive Date: 20160708
  Receipt Date: 20160708
  Transmission Date: 20161109
  Serious: No
  Sender: FDA-Public Use
  Company Number: US-CELGENEUS-USA-2016067421

PATIENT
  Sex: Male
  Weight: 88.08 kg

DRUGS (2)
  1. ISTODAX [Suspect]
     Active Substance: ROMIDEPSIN
     Indication: MYCOSIS FUNGOIDES
     Route: 041
  2. BEXAROTENE. [Concomitant]
     Active Substance: BEXAROTENE
     Indication: MYCOSIS FUNGOIDES
     Route: 065
     Dates: start: 201603

REACTIONS (1)
  - Wound [Not Recovered/Not Resolved]
